FAERS Safety Report 25995883 (Version 1)
Quarter: 2025Q4

REPORT INFORMATION
  Report Type: Spontaneous
  Country: US (occurrence: US)
  Receive Date: 20251104
  Receipt Date: 20251104
  Transmission Date: 20260118
  Serious: No
  Sender: VERTEX
  Company Number: US-VERTEX PHARMACEUTICALS-2025-018077

PATIENT
  Age: 65 Year
  Sex: Female

DRUGS (2)
  1. JOURNAVX [Suspect]
     Active Substance: SUZETRIGINE
     Indication: Fibromyalgia
     Dosage: 50 MG SUZETRIGINE
     Route: 048
     Dates: start: 202507, end: 20251024
  2. JOURNAVX [Suspect]
     Active Substance: SUZETRIGINE
     Indication: Pain

REACTIONS (2)
  - Peripheral swelling [Not Recovered/Not Resolved]
  - Off label use [Unknown]

NARRATIVE: CASE EVENT DATE: 20250701
